FAERS Safety Report 18196123 (Version 1)
Quarter: 2020Q3

REPORT INFORMATION
  Report Type: Spontaneous
  Country: CA (occurrence: CA)
  Receive Date: 20200825
  Receipt Date: 20200825
  Transmission Date: 20201103
  Serious: Yes (Life-Threatening)
  Sender: FDA-Public Use
  Company Number: CA-TEVA-2020-CA-1817648

PATIENT
  Age: 3 Year
  Sex: Female
  Weight: 11 kg

DRUGS (63)
  1. CYCLOSPORINE. [Concomitant]
     Active Substance: CYCLOSPORINE
  2. FUROSEMIDE. [Concomitant]
     Active Substance: FUROSEMIDE
  3. MYCOPHENOLIC ACID. [Concomitant]
     Active Substance: MYCOPHENOLIC ACID
  4. NIFEDIPINE. [Concomitant]
     Active Substance: NIFEDIPINE
  5. PENTAMIDINE ISETHIONATE INJ 300MG/VIAL BP [Concomitant]
  6. ANTI?THYMOCYTE GLOBULIN (RABBIT) NOS [Concomitant]
     Active Substance: LAPINE T-LYMPHOCYTE IMMUNE GLOBULIN
  7. SALBUTAMOL [Concomitant]
     Active Substance: ALBUTEROL
  8. ACYCLOVIR. [Concomitant]
     Active Substance: ACYCLOVIR
  9. AMLODIPINE [Concomitant]
     Active Substance: AMLODIPINE BESYLATE
  10. CLONIDINE. [Concomitant]
     Active Substance: CLONIDINE
  11. URSODIOL. [Concomitant]
     Active Substance: URSODIOL
  12. FLUDARABINE [Suspect]
     Active Substance: FLUDARABINE PHOSPHATE
     Indication: BONE MARROW TRANSPLANT
     Route: 042
  13. FLUDARABINE [Suspect]
     Active Substance: FLUDARABINE PHOSPHATE
     Route: 042
  14. AMPHOTERICIN B. [Concomitant]
     Active Substance: AMPHOTERICIN B
  15. CLOTRIMAZOLE. [Concomitant]
     Active Substance: CLOTRIMAZOLE
  16. FILGRASTIM [Concomitant]
     Active Substance: FILGRASTIM
  17. KETAMINE (UNKNOWN) [Concomitant]
     Active Substance: KETAMINE
  18. MUPIROCIN. [Concomitant]
     Active Substance: MUPIROCIN
  19. RANITIDINE. [Concomitant]
     Active Substance: RANITIDINE
  20. ZINC. [Concomitant]
     Active Substance: ZINC
  21. ALTEPLASE. [Concomitant]
     Active Substance: ALTEPLASE
  22. CICLESONIDE [Concomitant]
     Active Substance: CICLESONIDE
  23. DIPHENHYDRAMINE. [Concomitant]
     Active Substance: DIPHENHYDRAMINE
  24. EPINEPHRINE. [Concomitant]
     Active Substance: EPINEPHRINE
  25. FAMCICLOVIR. [Concomitant]
     Active Substance: FAMCICLOVIR
  26. FAMOTIDINE. [Concomitant]
     Active Substance: FAMOTIDINE
  27. HEPARIN CALCIUM [Concomitant]
     Active Substance: HEPARIN CALCIUM
  28. MAGNESIUM [Concomitant]
     Active Substance: MAGNESIUM
  29. NALOXONE [Concomitant]
     Active Substance: NALOXONE
  30. PANCRELIPASE. [Concomitant]
     Active Substance: PANCRELIPASE
  31. VANCOMYCIN [Concomitant]
     Active Substance: VANCOMYCIN
  32. BUSULFAN. [Suspect]
     Active Substance: BUSULFAN
     Indication: BONE MARROW TRANSPLANT
     Route: 042
  33. ACETAMINOPHEN. [Concomitant]
     Active Substance: ACETAMINOPHEN
  34. CALCIUM [Concomitant]
     Active Substance: CALCIUM
  35. CEPHALEXIN. [Concomitant]
     Active Substance: CEPHALEXIN
  36. CETIRIZINE [Concomitant]
     Active Substance: CETIRIZINE HYDROCHLORIDE
  37. CHLORHEXIDINE [Concomitant]
     Active Substance: CHLORHEXIDINE
  38. ONDANSETRON [Concomitant]
     Active Substance: ONDANSETRON
  39. PIPERACILLIN AND TAZOBACTUM FOR INJECTION [Concomitant]
  40. SULFAMETHOXAZOLE AND TRIMETHOPRIM [Concomitant]
     Active Substance: SULFAMETHOXAZOLE\TRIMETHOPRIM
  41. BUSULFAN. [Suspect]
     Active Substance: BUSULFAN
     Route: 042
  42. DESONIDE. [Concomitant]
     Active Substance: DESONIDE
  43. DIMENHYDRINATE. [Concomitant]
     Active Substance: DIMENHYDRINATE
  44. HYDROCORTISONE. [Concomitant]
     Active Substance: HYDROCORTISONE
  45. LANSOPRAZOLE. [Concomitant]
     Active Substance: LANSOPRAZOLE
  46. METHYLPREDNISOLONE NOS [Concomitant]
     Active Substance: METHYLPREDNISOLONE
  47. TOBRAMYCIN. [Concomitant]
     Active Substance: TOBRAMYCIN
  48. BETAMETHASONE. [Concomitant]
     Active Substance: BETAMETHASONE
  49. CHOLECALCIFEROL [Concomitant]
     Active Substance: CHOLECALCIFEROL
  50. LEVETIRACETAM. [Concomitant]
     Active Substance: LEVETIRACETAM
  51. LORAZEPAM. [Concomitant]
     Active Substance: LORAZEPAM
  52. METOCLOPRAMIDE. [Concomitant]
     Active Substance: METOCLOPRAMIDE
  53. METOCLOPRAMIDE. [Concomitant]
     Active Substance: METOCLOPRAMIDE
  54. MORPHINE [Concomitant]
     Active Substance: MORPHINE
  55. CYCLOPHOSPHAMIDE. [Suspect]
     Active Substance: CYCLOPHOSPHAMIDE
     Route: 042
  56. FLUCONAZOLE. [Concomitant]
     Active Substance: FLUCONAZOLE
  57. FOLIC ACID. [Concomitant]
     Active Substance: FOLIC ACID
  58. MELATONIN [Concomitant]
     Active Substance: MELATONIN
  59. SALICYLIC ACID. [Concomitant]
     Active Substance: SALICYLIC ACID
  60. TACROLIMUS. [Concomitant]
     Active Substance: TACROLIMUS
  61. ALEMTUZUMAB [Suspect]
     Active Substance: ALEMTUZUMAB
     Indication: BONE MARROW TRANSPLANT
     Route: 042
  62. CYCLOPHOSPHAMIDE. [Suspect]
     Active Substance: CYCLOPHOSPHAMIDE
     Indication: BONE MARROW TRANSPLANT
     Route: 042
  63. ATROPINE. [Concomitant]
     Active Substance: ATROPINE

REACTIONS (1)
  - Aplastic anaemia [Unknown]
